FAERS Safety Report 20045681 (Version 5)
Quarter: 2022Q1

REPORT INFORMATION
  Report Type: Report from Study
  Country: CH (occurrence: CH)
  Receive Date: 20211108
  Receipt Date: 20220109
  Transmission Date: 20220424
  Serious: Yes (Death)
  Sender: FDA-Public Use
  Company Number: CH-ABBVIE-21K-151-4151173-00

PATIENT
  Age: 79 Year
  Sex: Male

DRUGS (2)
  1. CARBIDOPA\LEVODOPA [Suspect]
     Active Substance: CARBIDOPA\LEVODOPA
     Indication: Parkinson^s disease
     Dosage: DAY: 8 ML/H, NIGHT: 2.5 ML/H
     Route: 050
     Dates: start: 20120123
  2. CARBIDOPA\LEVODOPA [Suspect]
     Active Substance: CARBIDOPA\LEVODOPA
     Dosage: 1 CASSETTE/DAY 24 HOUR THERAPY
     Route: 050
     Dates: start: 20140324, end: 20211031

REACTIONS (3)
  - Pulmonary embolism [Fatal]
  - Joint dislocation [Unknown]
  - Aspiration [Fatal]

NARRATIVE: CASE EVENT DATE: 20211031
